FAERS Safety Report 11201835 (Version 2)
Quarter: 2015Q3

REPORT INFORMATION
  Report Type: Spontaneous
  Country: US (occurrence: US)
  Receive Date: 20150619
  Receipt Date: 20150810
  Transmission Date: 20151125
  Serious: Yes (Other)
  Sender: FDA-Public Use
  Company Number: US-BAYER-2015-325397

PATIENT
  Age: 32 Year
  Sex: Female

DRUGS (1)
  1. MIRENA [Suspect]
     Active Substance: LEVONORGESTREL
     Indication: CONTRACEPTION
     Dosage: 20 MCG/24HR, CONT
     Route: 015
     Dates: start: 200806

REACTIONS (19)
  - Procedural pain [None]
  - Drug ineffective [None]
  - Pregnancy with contraceptive device [None]
  - Genital haemorrhage [None]
  - Joint injury [None]
  - Abdominal pain lower [None]
  - Injury [None]
  - Medical device pain [None]
  - Pain in extremity [None]
  - Depression [Not Recovered/Not Resolved]
  - Pain [None]
  - Device use error [None]
  - Device dislocation [None]
  - Activities of daily living impaired [None]
  - Device difficult to use [None]
  - Device breakage [None]
  - Crying [None]
  - Arthralgia [None]
  - Anxiety [Not Recovered/Not Resolved]

NARRATIVE: CASE EVENT DATE: 2008
